FAERS Safety Report 8136375-X (Version None)
Quarter: 2012Q1

REPORT INFORMATION
  Report Type: 
  Country: None (occurrence: None)
  Receive Date: 20120210
  Receipt Date: 20120130
  Transmission Date: 20120608
  Serious: Yes (Life-Threatening)
  Sender: FDA-Public Use
  Company Number: DSJ-2012-00597

PATIENT
  Age: 70 Year
  Sex: Male
  Weight: 62.8 kg

DRUGS (3)
  1. ADONA (CARBAZOCHROME SODIUM SULFONATE) (CARBAZOCHROME SODIUM SULFONATE [Concomitant]
  2. OLMESARTAN MEDOXOMIL [Suspect]
     Indication: HYPERTENSION
     Dosage: 20 MG (20 MG, 1 IN 1 D), PER ORAL
     Route: 048
     Dates: start: 20111206, end: 20120113
  3. KALLIKREIN (KALLIDINOGENASE) (KALLIDINOGENASE) [Concomitant]

REACTIONS (3)
  - PLATELET COUNT DECREASED [None]
  - PROCEDURAL COMPLICATION [None]
  - GASTRIC HAEMORRHAGE [None]
